FAERS Safety Report 4706050-X (Version None)
Quarter: 2005Q2

REPORT INFORMATION
  Report Type: 
  Country: None (occurrence: None)
  Receive Date: 20050204
  Receipt Date: 20050204
  Transmission Date: 20051028
  Serious: Yes (Other)
  Sender: FDA-Public Use
  Company Number: None

PATIENT
  Age: 47 Year
  Sex: Female
  Weight: 65.318 kg

DRUGS (1)
  1. TRAMADOL HCL [Suspect]
     Dosage: 1-2 TABS UP TO TID
     Dates: start: 20031029

REACTIONS (3)
  - NAUSEA [None]
  - PRURITUS [None]
  - RASH [None]
